FAERS Safety Report 18152787 (Version 2)
Quarter: 2021Q3

REPORT INFORMATION
  Report Type: Spontaneous
  Country: US (occurrence: US)
  Receive Date: 20200814
  Receipt Date: 20210819
  Transmission Date: 20211014
  Serious: No
  Sender: FDA-Public Use
  Company Number: US-MANNKIND CORPORATION-2019MK000147

PATIENT
  Age: 52 Year
  Sex: Female
  Weight: 72.64 kg

DRUGS (11)
  1. BACLOFEN. [Concomitant]
     Active Substance: BACLOFEN
     Indication: MUSCLE SPASMS
     Route: 048
     Dates: start: 2011
  2. KEPPRA [Concomitant]
     Active Substance: LEVETIRACETAM
     Indication: NEURALGIA
     Route: 048
     Dates: start: 2011
  3. LOSARTAN. [Concomitant]
     Active Substance: LOSARTAN
     Indication: RENAL DISORDER PROPHYLAXIS
     Route: 048
     Dates: start: 1999
  4. ATORVASTATIN [Concomitant]
     Active Substance: ATORVASTATIN
     Indication: BLOOD CHOLESTEROL ABNORMAL
     Route: 048
     Dates: start: 2001
  5. SUMATRIPTAN. [Concomitant]
     Active Substance: SUMATRIPTAN
     Indication: MIGRAINE
     Route: 048
     Dates: start: 2008
  6. AFREZZA [Suspect]
     Active Substance: INSULIN HUMAN
  7. AFREZZA [Suspect]
     Active Substance: INSULIN HUMAN
     Dates: start: 201902
  8. LEVOTHYROXINE. [Concomitant]
     Active Substance: LEVOTHYROXINE
     Indication: HYPOTHYROIDISM
     Route: 048
     Dates: start: 1999
  9. AFREZZA [Suspect]
     Active Substance: INSULIN HUMAN
     Indication: LATENT AUTOIMMUNE DIABETES IN ADULTS
     Dates: start: 20190120
  10. METFORMIN [Concomitant]
     Active Substance: METFORMIN HYDROCHLORIDE
     Indication: DIABETES MELLITUS
     Route: 048
     Dates: start: 1999
  11. WELLBUTRIN [Concomitant]
     Active Substance: BUPROPION HYDROCHLORIDE
     Indication: MIGRAINE
     Route: 048
     Dates: start: 1999

REACTIONS (3)
  - Blood glucose increased [Unknown]
  - Product physical issue [Unknown]
  - Drug ineffective [Unknown]
